FAERS Safety Report 21104602 (Version 1)
Quarter: 2022Q3

REPORT INFORMATION
  Report Type: Spontaneous
  Country: IL (occurrence: IL)
  Receive Date: 20220720
  Receipt Date: 20220720
  Transmission Date: 20221027
  Serious: Yes (Other)
  Sender: FDA-Public Use
  Company Number: IL-AMGEN-ISRSP2022120317

PATIENT

DRUGS (1)
  1. PANITUMUMAB [Suspect]
     Active Substance: PANITUMUMAB
     Indication: Product used for unknown indication
     Dosage: UNK
     Route: 065

REACTIONS (1)
  - Cardiac failure [Unknown]
